FAERS Safety Report 7141463-0 (Version None)
Quarter: 2010Q4

REPORT INFORMATION
  Report Type: 
  Country: None (occurrence: None)
  Receive Date: 20101119
  Receipt Date: 20091229
  Transmission Date: 20110411
  Serious: Yes (Hospitalization)
  Sender: FDA-Public Use
  Company Number: 2009021808

PATIENT
  Sex: Male

DRUGS (1)
  1. CARIMUNE [Suspect]
     Indication: IMMUNODEFICIENCY COMMON VARIABLE
     Dosage: (30 G, 30 G ONCE INTRAVENOUS)
     Route: 042
     Dates: start: 20070101, end: 20070101

REACTIONS (1)
  - SYNCOPE [None]
